FAERS Safety Report 12010118 (Version 4)
Quarter: 2016Q3

REPORT INFORMATION
  Report Type: Spontaneous
  Country: US (occurrence: US)
  Receive Date: 20160205
  Receipt Date: 20160804
  Transmission Date: 20161109
  Serious: Yes (Other)
  Sender: FDA-Public Use
  Company Number: US-BAYER-2016-020731

PATIENT
  Sex: Female
  Weight: 175 kg

DRUGS (10)
  1. CIPRO [Suspect]
     Active Substance: CIPROFLOXACIN HYDROCHLORIDE
     Dosage: 250 MG, UNK
     Dates: start: 20070716, end: 20070723
  2. MODAFINIL. [Concomitant]
     Active Substance: MODAFINIL
     Indication: NARCOLEPSY
     Dosage: 200 MG, BID
  3. AVELOX [Suspect]
     Active Substance: MOXIFLOXACIN HYDROCHLORIDE
     Dosage: UNK
  4. LEVAQUIN [Suspect]
     Active Substance: LEVOFLOXACIN
     Dosage: UNK
  5. NAPROXEN. [Concomitant]
     Active Substance: NAPROXEN
     Indication: PAIN
     Dosage: 375 MG, BID
     Dates: start: 2003
  6. RISPERDAL [Concomitant]
     Active Substance: RISPERIDONE
     Indication: DEPRESSION
     Dosage: 2 MG, QD
     Dates: start: 20081130
  7. DOCUSATE [Concomitant]
     Active Substance: DOCUSATE
     Indication: CHANGE OF BOWEL HABIT
     Dosage: 8.6 MG, BID
  8. LORATADINE. [Concomitant]
     Active Substance: LORATADINE
     Indication: MULTIPLE ALLERGIES
     Dosage: 10 MG, QD
  9. RANITIDINE. [Concomitant]
     Active Substance: RANITIDINE
     Indication: GASTROOESOPHAGEAL REFLUX DISEASE
     Dosage: 150 MG, BID
  10. NAPROXEN. [Concomitant]
     Active Substance: NAPROXEN
     Indication: MYALGIA

REACTIONS (8)
  - Neuropathy peripheral [None]
  - Musculoskeletal injury [None]
  - Depression [None]
  - Nervous system disorder [None]
  - Cardiovascular disorder [None]
  - Mental disorder [None]
  - Skin injury [None]
  - Pain [None]

NARRATIVE: CASE EVENT DATE: 2007
